FAERS Safety Report 6818531-3 (Version None)
Quarter: 2010Q2

REPORT INFORMATION
  Report Type: 
  Country: None (occurrence: None)
  Receive Date: 20100630
  Receipt Date: 20100616
  Transmission Date: 20101027
  Serious: Yes (Other)
  Sender: FDA-Public Use
  Company Number: 2010002435

PATIENT
  Age: 65 Year
  Sex: Male

DRUGS (3)
  1. TARCEVA [Suspect]
     Indication: LUNG NEOPLASM MALIGNANT
     Dosage: (150 MG,QD), ORAL
     Route: 048
     Dates: start: 20100413
  2. BISACODYL (BISACODYL) [Concomitant]
  3. MORPHINE [Concomitant]

REACTIONS (1)
  - HAEMOPTYSIS [None]
